FAERS Safety Report 16892749 (Version 3)
Quarter: 2020Q2

REPORT INFORMATION
  Report Type: Spontaneous
  Country: US (occurrence: US)
  Receive Date: 20191007
  Receipt Date: 20200608
  Transmission Date: 20200713
  Serious: Yes (Hospitalization)
  Sender: FDA-Public Use
  Company Number: US-AMNEAL PHARMACEUTICALS-2019-AMRX-02027

PATIENT
  Age: 37 Year
  Sex: Female
  Weight: 107 kg

DRUGS (19)
  1. ELAGOLIX [Suspect]
     Active Substance: ELAGOLIX
     Dosage: 200 MILLIGRAM, BID
     Route: 048
     Dates: start: 20190320
  2. HYDROCHLOROTHIAZIDE. [Concomitant]
     Active Substance: HYDROCHLOROTHIAZIDE
     Indication: HYPERTENSION
     Dosage: 25 MILLIGRAM, DAILY
     Route: 048
     Dates: start: 2016
  3. CLONAZEPAM. [Concomitant]
     Active Substance: CLONAZEPAM
     Indication: ANXIETY
     Dosage: 0.25 MILLIGRAM AS NEEDED
     Route: 048
     Dates: start: 201710, end: 20190506
  4. AMOXICILLIN. [Concomitant]
     Active Substance: AMOXICILLIN
     Indication: PHARYNGITIS STREPTOCOCCAL
     Dosage: 500 MILLIGRAM, DAILY
     Route: 048
     Dates: start: 20190721, end: 20190731
  5. CLONAZEPAM. [Concomitant]
     Active Substance: CLONAZEPAM
     Dosage: 0.5 MILLIGRAM, 2 /DAY
     Route: 048
     Dates: start: 20190506
  6. ZOFRAN [Concomitant]
     Active Substance: ONDANSETRON HYDROCHLORIDE
     Indication: NAUSEA
     Dosage: UNK
     Route: 065
     Dates: start: 20180723, end: 20180924
  7. IMITREX [Concomitant]
     Active Substance: SUMATRIPTAN SUCCINATE
     Indication: MIGRAINE
     Dosage: 100 MILLIGRAM AS NEEDED
     Route: 048
     Dates: start: 20180723
  8. PHENERGAN [Concomitant]
     Active Substance: PROMETHAZINE HYDROCHLORIDE
     Indication: NAUSEA
     Dosage: 25 MILLIGRAM AS NEEDED
     Route: 048
     Dates: start: 20180924
  9. PREDNISONE. [Concomitant]
     Active Substance: PREDNISONE
     Indication: EAR INFECTION
  10. ELAGOLIX [Suspect]
     Active Substance: ELAGOLIX
     Indication: ENDOMETRIOSIS
     Dosage: 200 MILLIGRAM, 2 /DAY
     Route: 048
     Dates: start: 20180411, end: 20190319
  11. PREDNISONE. [Concomitant]
     Active Substance: PREDNISONE
     Indication: BURSITIS
     Dosage: 20 MILLIGRAM, 2 /DAY
     Route: 048
     Dates: start: 20181103, end: 20181109
  12. ACTIVELLA [Suspect]
     Active Substance: ESTRADIOL\NORETHINDRONE ACETATE
     Indication: ENDOMETRIOSIS
     Dosage: 1 TABLETS, DAILY
     Route: 048
     Dates: start: 20190320
  13. TRIAMCINOLONE [Concomitant]
     Active Substance: TRIAMCINOLONE
     Indication: ECZEMA
     Dosage: 0.025 PERCENT AS NEEDED
     Route: 061
     Dates: start: 20180723
  14. VIRTUSSIN AC [Concomitant]
     Active Substance: CODEINE PHOSPHATE\GUAIFENESIN
     Indication: BRONCHITIS
     Dosage: 1 DOSAGE FORM, 4-6 HOURS AS NEEDED
     Route: 048
     Dates: start: 20190206, end: 20190212
  15. PREDNISONE. [Concomitant]
     Active Substance: PREDNISONE
     Indication: BRONCHITIS
     Dosage: 20 MILLIGRAM, 2 /DAY
     Route: 048
     Dates: start: 20190208, end: 20190212
  16. LEXAPRO [Concomitant]
     Active Substance: ESCITALOPRAM OXALATE
     Indication: ANXIETY
     Dosage: 1 DOSAGE FORM, DAILY
     Route: 048
     Dates: start: 20190506
  17. FLONASE [MOMETASONE FUROATE] [Concomitant]
     Active Substance: MOMETASONE FUROATE
     Indication: EAR INFECTION
     Dosage: 2 SPRAY (OTHER 1 IN 1 DAY)
     Route: 045
     Dates: start: 20190723, end: 20190804
  18. PREDNISONE. [Concomitant]
     Active Substance: PREDNISONE
     Indication: PYREXIA
     Dosage: 20 MILLIGRAM, 2 /DAY
     Route: 048
     Dates: start: 20190725, end: 20190725
  19. CLARITIN [GLICLAZIDE] [Concomitant]
     Active Substance: GLICLAZIDE
     Indication: EAR INFECTION
     Dosage: 10 MILLIGRAM, DAILY
     Route: 048
     Dates: start: 20190723, end: 20190804

REACTIONS (1)
  - Ovarian cyst ruptured [Recovered/Resolved]

NARRATIVE: CASE EVENT DATE: 20190916
